FAERS Safety Report 4711014-6 (Version None)
Quarter: 2005Q3

REPORT INFORMATION
  Report Type: 
  Country: None (occurrence: None)
  Receive Date: 20050708
  Receipt Date: 20050624
  Transmission Date: 20060218
  Serious: Yes (Death, Other)
  Sender: FDA-Public Use
  Company Number: GBS050417257

PATIENT
  Age: 57 Year
  Sex: Female
  Weight: 60 kg

DRUGS (15)
  1. XIGRIS [Suspect]
     Indication: SEPSIS
     Dosage: 24 UG/KG/HR
     Dates: start: 20041111, end: 20041116
  2. FENTANYL [Concomitant]
  3. PROPOFOL [Concomitant]
  4. NORADRENALINE [Concomitant]
  5. ADRENALINE [Concomitant]
  6. CLARITHROMYCIN [Concomitant]
  7. CEFOTAXINE [Concomitant]
  8. FLOLAN (EPOPROSTENOL) [Concomitant]
  9. ACYCLOVIR [Concomitant]
  10. MIDAZOLAM HYDROCHLORIDE [Concomitant]
  11. MORPHINE [Concomitant]
  12. INSULIN [Concomitant]
  13. AMIODARONE HCL [Concomitant]
  14. DOPEXAMINE [Concomitant]
  15. FRUSEMIDE [Concomitant]

REACTIONS (5)
  - HAEMODIALYSIS [None]
  - HAEMORRHAGE INTRACRANIAL [None]
  - MOUTH HAEMORRHAGE [None]
  - OESOPHAGEAL HAEMORRHAGE [None]
  - THROMBOCYTOPENIA [None]
